FAERS Safety Report 10055706 (Version 1)
Quarter: 2014Q2

REPORT INFORMATION
  Report Type: Spontaneous
  Country: US (occurrence: US)
  Receive Date: 20140403
  Receipt Date: 20140403
  Transmission Date: 20141212
  Serious: Yes (Other)
  Sender: FDA-Public Use
  Company Number: US-ASTRAZENECA-2014SE21911

PATIENT
  Age: 74 Year
  Sex: Male
  Weight: 68 kg

DRUGS (1)
  1. SYMBICORT [Suspect]
     Dosage: 160/4.5MCG, 2 PUFFS BID
     Route: 055

REACTIONS (6)
  - Pneumonia [Unknown]
  - Hearing impaired [Unknown]
  - Pleurisy [Unknown]
  - Chromaturia [Unknown]
  - Drug effect incomplete [Unknown]
  - Intentional product misuse [Unknown]
